FAERS Safety Report 24425952 (Version 1)
Quarter: 2024Q4

REPORT INFORMATION
  Report Type: Spontaneous
  Country: DE (occurrence: DE)
  Receive Date: 20241011
  Receipt Date: 20241011
  Transmission Date: 20250115
  Serious: Yes (Hospitalization, Other)
  Sender: AUROBINDO
  Company Number: DE-ABBVIE-5939242

PATIENT
  Age: 81 Year
  Sex: Male

DRUGS (10)
  1. CLOZAPINE [Suspect]
     Active Substance: CLOZAPINE
     Indication: Product used for unknown indication
     Dosage: UNK
     Route: 065
  2. PRAMIPEXOLE [Suspect]
     Active Substance: PRAMIPEXOLE\PRAMIPEXOLE DIHYDROCHLORIDE
     Indication: Product used for unknown indication
     Dosage: UNK
     Route: 065
  3. CARBIDOPA\LEVODOPA [Suspect]
     Active Substance: CARBIDOPA\LEVODOPA
     Indication: Parkinson^s disease
     Dosage: UNK(MD: 5.0ML; CRD: 0.4ML/H; ED: 2.5ML)
     Route: 065
     Dates: start: 20221004
  4. CARBIDOPA\LEVODOPA [Suspect]
     Active Substance: CARBIDOPA\LEVODOPA
     Dosage: MD: 5.0ML; CRD: 0.9ML/H; ED: 1.5ML/DOSE INCREASED
     Route: 065
  5. ENTACAPONE [Suspect]
     Active Substance: ENTACAPONE
     Indication: Product used for unknown indication
     Dosage: UNK
     Route: 065
     Dates: start: 2017
  6. LEVOTHYROXINE SODIUM [Concomitant]
     Active Substance: LEVOTHYROXINE SODIUM
     Indication: Product used for unknown indication
     Dosage: 75 MICROGRAM
     Route: 065
  7. ALLOPURINOL [Concomitant]
     Active Substance: ALLOPURINOL
     Indication: Product used for unknown indication
     Dosage: 100 MILLIGRAM
     Route: 065
  8. TORSEMIDE [Concomitant]
     Active Substance: TORSEMIDE
     Indication: Product used for unknown indication
     Dosage: 100 MILLIGRAM
     Route: 065
  9. XADAGO [Concomitant]
     Active Substance: SAFINAMIDE MESYLATE
     Indication: Product used for unknown indication
     Dosage: 100 MILLIGRAM
     Route: 065
  10. ONGENTYS [Concomitant]
     Active Substance: OPICAPONE
     Indication: Product used for unknown indication
     Dosage: 50 MILLIGRAM
     Route: 065

REACTIONS (47)
  - Hallucination [Unknown]
  - Amaurosis [Unknown]
  - Cognitive disorder [Unknown]
  - Nervous system disorder [Unknown]
  - Nasal operation [Unknown]
  - Organic brain syndrome [Unknown]
  - Toxicity to various agents [Unknown]
  - Guillain-Barre syndrome [Unknown]
  - Hypothermia [Unknown]
  - Neuropathy peripheral [Unknown]
  - Dystonia [Unknown]
  - Encephalopathy [Unknown]
  - Hypothyroidism [Unknown]
  - Asthenia [Unknown]
  - Lower limb fracture [Unknown]
  - Depression [Unknown]
  - Illness [Unknown]
  - Somnolence [Unknown]
  - Hyperparathyroidism secondary [Unknown]
  - Drug intolerance [Unknown]
  - Gait disturbance [Unknown]
  - Muscle rigidity [Unknown]
  - Dysgraphia [Unknown]
  - Pain in extremity [Unknown]
  - Blood uric acid decreased [Unknown]
  - Nephropathy [Unknown]
  - Hypertension [Unknown]
  - Urinary incontinence [Unknown]
  - Memory impairment [Unknown]
  - Dysarthria [Unknown]
  - Unevaluable event [Unknown]
  - Tremor [Recovering/Resolving]
  - Freezing phenomenon [Unknown]
  - Dysphonia [Unknown]
  - Dysphagia [Unknown]
  - Folate deficiency [Unknown]
  - Hypopnoea [Unknown]
  - Mobility decreased [Unknown]
  - Dysarthria [Unknown]
  - Aphasia [Unknown]
  - Blood creatinine increased [Unknown]
  - Hyperkinesia [Unknown]
  - Reduced facial expression [Unknown]
  - Loss of personal independence in daily activities [Unknown]
  - Blood urea increased [Unknown]
  - Serum ferritin increased [Unknown]
  - Fine motor skill dysfunction [Unknown]

NARRATIVE: CASE EVENT DATE: 20240101
